FAERS Safety Report 13969620 (Version 1)
Quarter: 2017Q3

REPORT INFORMATION
  Report Type: Spontaneous
  Country: US (occurrence: US)
  Receive Date: 20170914
  Receipt Date: 20170914
  Transmission Date: 20171128
  Serious: Yes (Other)
  Sender: FDA-Public Use
  Company Number: US-GLAXOSMITHKLINE-US2017GSK141892

PATIENT
  Age: 42 Year
  Sex: Female

DRUGS (2)
  1. FLOLAN [Suspect]
     Active Substance: EPOPROSTENOL SODIUM
     Indication: PULMONARY ARTERIAL HYPERTENSION
  2. FLOLAN [Suspect]
     Active Substance: EPOPROSTENOL SODIUM
     Indication: PULMONARY ARTERIAL HYPERTENSION
     Dosage: 11 DF, CO
     Dates: start: 20170825

REACTIONS (8)
  - Choking [Unknown]
  - Vomiting [Unknown]
  - Somnolence [Unknown]
  - Device use error [Unknown]
  - Asthenia [Unknown]
  - Therapy cessation [Unknown]
  - Chest pain [Unknown]
  - Cough [Unknown]

NARRATIVE: CASE EVENT DATE: 20170909
